FAERS Safety Report 9967310 (Version 2)
Quarter: 2014Q1

REPORT INFORMATION
  Report Type: Report from Study
  Country: US (occurrence: US)
  Receive Date: 20140305
  Receipt Date: 20140305
  Transmission Date: 20141002
  Serious: No
  Sender: FDA-Public Use
  Company Number: US-ABBVIE-13P-163-1119433-00

PATIENT
  Age: 51 Year
  Sex: Female

DRUGS (6)
  1. HUMIRA [Suspect]
     Indication: PSORIASIS
     Dosage: DAY 1
     Dates: start: 20130627, end: 20130627
  2. HUMIRA [Suspect]
     Dosage: DAY 8
     Route: 058
     Dates: start: 20130704, end: 20130704
  3. HUMIRA [Suspect]
     Dosage: DAY 22
     Route: 058
     Dates: start: 20130718, end: 20130718
  4. HUMIRA [Suspect]
     Route: 058
     Dates: start: 201307
  5. IBUPROFEN [Concomitant]
     Indication: PAIN
  6. NAPROXEN [Concomitant]
     Indication: PAIN

REACTIONS (8)
  - Rhinorrhoea [Not Recovered/Not Resolved]
  - Injection site erythema [Unknown]
  - Injection site pain [Unknown]
  - Injection site pain [Not Recovered/Not Resolved]
  - Sinusitis [Not Recovered/Not Resolved]
  - Sinus congestion [Not Recovered/Not Resolved]
  - Sensation of pressure [Not Recovered/Not Resolved]
  - Middle ear effusion [Not Recovered/Not Resolved]
